FAERS Safety Report 7728139-3 (Version None)
Quarter: 2011Q3

REPORT INFORMATION
  Report Type: 
  Country: None (occurrence: None)
  Receive Date: 20110905
  Receipt Date: 20110902
  Transmission Date: 20111222
  Serious: Yes (Other)
  Sender: FDA-Public Use
  Company Number: US-BRISTOL-MYERS SQUIBB COMPANY-15843758

PATIENT
  Age: 71 Year

DRUGS (6)
  1. COUMADIN [Suspect]
  2. WARFARIN SODIUM [Concomitant]
  3. LISINOPRIL [Concomitant]
  4. LORAZEPAM [Concomitant]
  5. CHEMOTHERAPY [Suspect]
     Dates: start: 20070701
  6. PLAVIX [Concomitant]

REACTIONS (2)
  - TRANSIENT ISCHAEMIC ATTACK [None]
  - INTERNATIONAL NORMALISED RATIO FLUCTUATION [None]
